FAERS Safety Report 24682796 (Version 1)
Quarter: 2024Q4

REPORT INFORMATION
  Report Type: Spontaneous
  Country: US (occurrence: US)
  Receive Date: 20241201
  Receipt Date: 20241201
  Transmission Date: 20250115
  Serious: No
  Sender: SANOFI AVENTIS
  Company Number: US-SA-2024SA347430

PATIENT
  Sex: Male

DRUGS (1)
  1. DUPIXENT [Suspect]
     Active Substance: DUPILUMAB
     Indication: Dermatitis atopic
     Dosage: 300MG, INJECT 2 PENS UNDER THE SKIN ON DAY 1, THEN INJECT 1 PEN ON DAY 15, THEN 1 PEN EVERY 14 DAYS
     Route: 058

REACTIONS (1)
  - Dermatitis atopic [Unknown]
